FAERS Safety Report 12187562 (Version 1)
Quarter: 2016Q1

REPORT INFORMATION
  Report Type: Spontaneous
  Country: JP (occurrence: JP)
  Receive Date: 20160317
  Receipt Date: 20160317
  Transmission Date: 20160526
  Serious: Yes (Death)
  Sender: FDA-Public Use
  Company Number: JP-MALLINCKRODT-T201600953

PATIENT
  Age: 50 Year
  Sex: Female
  Weight: 43 kg

DRUGS (11)
  1. OXIFAST [Suspect]
     Active Substance: OXYCODONE
     Indication: ANALGESIC THERAPY
     Dosage: 250 MG
     Route: 051
     Dates: start: 20151216, end: 20151219
  2. FENTOS [Concomitant]
     Active Substance: FENTANYL
     Indication: ANALGESIC THERAPY
     Dosage: 16 MG
     Route: 062
     Dates: start: 20150915, end: 20150924
  3. LYRICA [Concomitant]
     Active Substance: PREGABALIN
     Indication: ANALGESIC THERAPY
     Dosage: 150 MG
     Route: 048
     Dates: end: 20151216
  4. LONSURF [Concomitant]
     Active Substance: TIPIRACIL HYDROCHLORIDE\TRIFLURIDINE
     Dosage: 6 DF
     Route: 048
     Dates: start: 20150922, end: 20150926
  5. OXINORM [Concomitant]
     Active Substance: OXYCODONE HYDROCHLORIDE
     Indication: ANALGESIC THERAPY
     Dosage: 30 MG PRN
     Route: 048
     Dates: start: 20150916
  6. COCARL [Concomitant]
     Active Substance: ACETAMINOPHEN
     Indication: ANALGESIC THERAPY
     Dosage: 2400 MG
     Route: 048
     Dates: end: 20151216
  7. METHADONE [Suspect]
     Active Substance: METHADONE HYDROCHLORIDE
     Indication: CANCER PAIN
     Dosage: 10 MG, 30MG DAILY DOSE
     Route: 048
     Dates: start: 20150915, end: 20150917
  8. METHADONE [Suspect]
     Active Substance: METHADONE HYDROCHLORIDE
     Dosage: 20 MG, 60 MG DAILY DOSE
     Route: 048
     Dates: start: 20150921, end: 20151129
  9. METHADONE [Suspect]
     Active Substance: METHADONE HYDROCHLORIDE
     Dosage: UNK, 50 MG DAILY DOSE
     Route: 048
     Dates: start: 20151130, end: 20151216
  10. METHADONE [Suspect]
     Active Substance: METHADONE HYDROCHLORIDE
     Dosage: 15 MG, 45MG DAILY DOSE
     Route: 048
     Dates: start: 20150918, end: 20150920
  11. FENTOS [Concomitant]
     Active Substance: FENTANYL
     Dosage: 12 MG
     Route: 062
     Dates: start: 20150925, end: 20151218

REACTIONS (1)
  - Malignant neoplasm progression [Fatal]

NARRATIVE: CASE EVENT DATE: 20151219
